FAERS Safety Report 12981365 (Version 1)
Quarter: 2016Q4

REPORT INFORMATION
  Report Type: Spontaneous
  Country: US (occurrence: US)
  Receive Date: 20161129
  Receipt Date: 20161129
  Transmission Date: 20170207
  Serious: No
  Sender: FDA-Public Use
  Company Number: US-ZYDUS-010592

PATIENT
  Age: 81 Year
  Sex: Female

DRUGS (5)
  1. CALCIUM CARBONATE/CALCIUM LACTOGLUCONATE [Concomitant]
     Indication: SUPPLEMENTATION THERAPY
  2. HYOSCYAMINE/HYOSCYAMINE HYDROBROMIDE/HYOSCYAMINE SULFATE [Concomitant]
     Indication: DIVERTICULITIS
  3. LOSARTAN. [Suspect]
     Active Substance: LOSARTAN
     Indication: HYPERTENSION
     Route: 048
     Dates: start: 20160121
  4. ALPRAZOLAM. [Concomitant]
     Active Substance: ALPRAZOLAM
     Indication: ANXIETY
  5. PLANTAGO OVATA [Concomitant]
     Active Substance: PLANTAGO OVATA LEAF

REACTIONS (9)
  - Hunger [Not Recovered/Not Resolved]
  - Feeling cold [Not Recovered/Not Resolved]
  - Headache [Not Recovered/Not Resolved]
  - Fatigue [Not Recovered/Not Resolved]
  - Flatulence [Not Recovered/Not Resolved]
  - Throat irritation [Not Recovered/Not Resolved]
  - Abdominal pain upper [Not Recovered/Not Resolved]
  - Diarrhoea [Not Recovered/Not Resolved]
  - Faeces soft [Not Recovered/Not Resolved]

NARRATIVE: CASE EVENT DATE: 20160121
